FAERS Safety Report 4599426-5 (Version None)
Quarter: 2005Q1

REPORT INFORMATION
  Report Type: 
  Country: None (occurrence: None)
  Receive Date: 20050307
  Receipt Date: 20050224
  Transmission Date: 20050727
  Serious: Yes (Other)
  Sender: FDA-Public Use
  Company Number: 200511502US

PATIENT
  Sex: 0

DRUGS (1)
  1. TAXOTERE [Suspect]
     Dosage: DOSE: NOT PROVIDED

REACTIONS (2)
  - OPTIC NERVE INJURY [None]
  - RETINOPATHY [None]
